FAERS Safety Report 6877924-9 (Version None)
Quarter: 2010Q3

REPORT INFORMATION
  Report Type: 
  Country: None (occurrence: None)
  Receive Date: 20100727
  Receipt Date: 20100721
  Transmission Date: 20110219
  Serious: Yes (Hospitalization)
  Sender: FDA-Public Use
  Company Number: US-MERCK-1007USA02537

PATIENT
  Age: 63 Year
  Sex: Female

DRUGS (1)
  1. FOSAMAX [Suspect]
     Indication: BONE DENSITY DECREASED
     Route: 048
     Dates: start: 20030101, end: 20100501

REACTIONS (4)
  - CHEST DISCOMFORT [None]
  - DYSPHAGIA [None]
  - MUSCULAR WEAKNESS [None]
  - PALPITATIONS [None]
